FAERS Safety Report 13687088 (Version 1)
Quarter: 2017Q2

REPORT INFORMATION
  Report Type: Spontaneous
  Country: US (occurrence: US)
  Receive Date: 20170623
  Receipt Date: 20170623
  Transmission Date: 20170830
  Serious: Yes (Hospitalization, Other)
  Sender: FDA-Public Use
  Company Number: US-SAOL THERAPEUTICS-2017SAO00873

PATIENT
  Age: 60 Year
  Sex: Male
  Weight: 100.68 kg

DRUGS (23)
  1. SENOKOT-S [Concomitant]
     Active Substance: DOCUSATE SODIUM\SENNOSIDES
  2. DIFLUCAN [Concomitant]
     Active Substance: FLUCONAZOLE
  3. DITROPAN-XL [Concomitant]
  4. ALDACTONE [Concomitant]
     Active Substance: SPIRONOLACTONE
     Dosage: UNK
  5. COMPOUNDED BACLOFEN [Suspect]
     Active Substance: BACLOFEN
     Indication: MUSCLE SPASTICITY
     Dosage: 96.17 ?G, \DAY
     Route: 037
  6. BUPIVACAINE. [Suspect]
     Active Substance: BUPIVACAINE
     Dosage: 6.272 MG, \DAY
     Route: 037
  7. HYDRODIURIL [Concomitant]
     Active Substance: HYDROCHLOROTHIAZIDE
     Dosage: 25 MG, 1X/DAY
  8. NORCO [Concomitant]
     Active Substance: ACETAMINOPHEN\HYDROCODONE BITARTRATE
     Dosage: 1 TABLETS, 3X/DAY
  9. HYDROMORPHONE [Concomitant]
     Active Substance: HYDROMORPHONE
  10. ACTOS [Concomitant]
     Active Substance: PIOGLITAZONE HYDROCHLORIDE
  11. LIORESAL [Concomitant]
     Active Substance: BACLOFEN
     Dosage: 1 TABLETS, 3X/DAY
     Route: 048
  12. MYCELEX [Concomitant]
     Active Substance: CLOTRIMAZOLE
  13. PROTONIX [Concomitant]
     Active Substance: PANTOPRAZOLE SODIUM
  14. ASPIRIN. [Concomitant]
     Active Substance: ASPIRIN
  15. COZAAR [Concomitant]
     Active Substance: LOSARTAN POTASSIUM
     Dosage: 100 MG, 1X/DAY
  16. DILAUDID [Suspect]
     Active Substance: HYDROMORPHONE HYDROCHLORIDE
     Dosage: 4.181 MG, \DAY
     Route: 037
  17. CYMBALTA [Concomitant]
     Active Substance: DULOXETINE HYDROCHLORIDE
     Dosage: 60 MG, 2X/DAY
  18. NEURONTIN [Concomitant]
     Active Substance: GABAPENTIN
  19. CARAFATE [Concomitant]
     Active Substance: SUCRALFATE
     Dosage: 1 TABLETS, 4X/DAY
  20. BUSPAR [Concomitant]
     Active Substance: BUSPIRONE HYDROCHLORIDE
     Dosage: 5 MG, 2X/DAY
  21. SPECTAZOLE [Concomitant]
     Active Substance: ECONAZOLE NITRATE
  22. CARAC [Concomitant]
     Active Substance: FLUOROURACIL
  23. PHENERGAN [Concomitant]
     Active Substance: PROMETHAZINE HYDROCHLORIDE
     Dosage: .5 TABLETS, 2X/DAY

REACTIONS (26)
  - Haemangioma of bone [Unknown]
  - Mental status changes [Recovered/Resolved]
  - Ankle fracture [Unknown]
  - Coma [Recovered/Resolved]
  - Hyperreflexia [Unknown]
  - Intervertebral disc protrusion [Unknown]
  - Overdose [Unknown]
  - Somnolence [Recovered/Resolved]
  - Arthralgia [Unknown]
  - Respiratory failure [Recovered/Resolved]
  - Stomatitis [Unknown]
  - Back pain [Unknown]
  - Cervical spinal stenosis [Not Recovered/Not Resolved]
  - Constipation [Unknown]
  - Oedema peripheral [Unknown]
  - Fall [Recovered/Resolved]
  - Anxiety [Recovering/Resolving]
  - Iron deficiency anaemia [Unknown]
  - Hypertonic bladder [Unknown]
  - Gastrooesophageal reflux disease [Unknown]
  - Atrophy [Unknown]
  - Spondylolisthesis [Unknown]
  - Intervertebral disc degeneration [Unknown]
  - Seizure [Recovered/Resolved]
  - Hypotension [Recovered/Resolved]
  - Vertebral foraminal stenosis [Unknown]

NARRATIVE: CASE EVENT DATE: 2016
